FAERS Safety Report 7924608-1 (Version None)
Quarter: 2011Q4

REPORT INFORMATION
  Report Type: 
  Country: None (occurrence: None)
  Receive Date: 20111117
  Receipt Date: 20110324
  Transmission Date: 20120403
  Serious: No
  Sender: FDA-Public Use
  Company Number: US-AMGEN-USASP2011015950

PATIENT
  Age: 56 Year
  Sex: Female

DRUGS (1)
  1. ENBREL [Suspect]
     Indication: PSORIATIC ARTHROPATHY
     Dosage: 50 MG, QWK
     Dates: start: 20070810, end: 20100501

REACTIONS (5)
  - MUSCULOSKELETAL STIFFNESS [None]
  - GIARDIASIS [None]
  - OEDEMA PERIPHERAL [None]
  - SOFT TISSUE INJURY [None]
  - PAIN IN EXTREMITY [None]
